FAERS Safety Report 12729019 (Version 1)
Quarter: 2016Q3

REPORT INFORMATION
  Report Type: Spontaneous
  Country: JP (occurrence: JP)
  Receive Date: 20160909
  Receipt Date: 20160909
  Transmission Date: 20161109
  Serious: Yes (Other)
  Sender: FDA-Public Use
  Company Number: JP-SA-2016SA164578

PATIENT
  Sex: Female

DRUGS (5)
  1. JUVELA [Concomitant]
     Active Substance: .ALPHA.-TOCOPHEROL\RETINOL
     Route: 048
  2. MYSLEE [Suspect]
     Active Substance: ZOLPIDEM TARTRATE
     Route: 048
  3. NEUROTROPIN [Concomitant]
     Active Substance: NEUROTROPIN
     Route: 048
  4. METHYCOBAL [Concomitant]
     Active Substance: METHYLCOBALAMIN
     Route: 048
  5. CINAL [Concomitant]
     Active Substance: ASCORBIC ACID\CALCIUM PANTOTHENATE
     Route: 048

REACTIONS (1)
  - Cataract [Unknown]
